FAERS Safety Report 14323372 (Version 6)
Quarter: 2018Q2

REPORT INFORMATION
  Report Type: Other
  Country: PL (occurrence: PL)
  Receive Date: 20171226
  Receipt Date: 20180622
  Transmission Date: 20180711
  Serious: Yes (Hospitalization, Other)
  Sender: FDA-Public Use
  Company Number: PL-MERCK KGAA-2037715

PATIENT
  Age: 81 Year
  Sex: Female

DRUGS (23)
  1. CIPROFLOXACIN. [Suspect]
     Active Substance: CIPROFLOXACIN
     Route: 042
  2. ENCORTON [Suspect]
     Active Substance: PREDNISONE
  3. AMIODARONE [Suspect]
     Active Substance: AMIODARONE
     Dates: start: 20130301, end: 20160101
  4. CARVEDILOL. [Suspect]
     Active Substance: CARVEDILOL
  5. HEPARIN [Suspect]
     Active Substance: HEPARIN SODIUM
  6. CIPROFLOXACIN. [Suspect]
     Active Substance: CIPROFLOXACIN
     Route: 042
  7. ENCORTON [Suspect]
     Active Substance: PREDNISONE
  8. ENCORTON [Suspect]
     Active Substance: PREDNISONE
  9. CARVEDILOL. [Suspect]
     Active Substance: CARVEDILOL
  10. ENCORTON [Suspect]
     Active Substance: PREDNISONE
  11. FUROSEMIDE. [Suspect]
     Active Substance: FUROSEMIDE
  12. VITAMIN D [Concomitant]
     Active Substance: CHOLECALCIFEROL
  13. NOVOTHYROX [Suspect]
     Active Substance: LEVOTHYROXINE SODIUM
     Indication: PRODUCT USED FOR UNKNOWN INDICATION
  14. ENCORTON [Suspect]
     Active Substance: PREDNISONE
  15. CIPROFLOXACIN. [Suspect]
     Active Substance: CIPROFLOXACIN
     Route: 042
  16. PANTOPRAZOLE [Suspect]
     Active Substance: PANTOPRAZOLE
  17. NADROPARIN [Suspect]
     Active Substance: NADROPARIN
  18. RIVAROXABAN [Suspect]
     Active Substance: RIVAROXABAN
  19. CALCIUM [Concomitant]
     Active Substance: CALCIUM
  20. CARVEDILOL. [Suspect]
     Active Substance: CARVEDILOL
  21. CARVEDILOL. [Suspect]
     Active Substance: CARVEDILOL
  22. LEVOTHYROXINE. [Suspect]
     Active Substance: LEVOTHYROXINE
  23. LEVOTHYROXINE SODIUM. [Suspect]
     Active Substance: LEVOTHYROXINE SODIUM

REACTIONS (13)
  - Pulmonary toxicity [Recovered/Resolved]
  - Cough [Recovered/Resolved]
  - Palpitations [Recovered/Resolved]
  - Diarrhoea [Recovering/Resolving]
  - Pneumonia [Recovered/Resolved]
  - Atrial fibrillation [Unknown]
  - Fatigue [Recovered/Resolved]
  - Oedema peripheral [Unknown]
  - Oliguria [Recovering/Resolving]
  - Ventricular arrhythmia [Unknown]
  - Dyspnoea [Recovered/Resolved]
  - Exercise tolerance decreased [Recovered/Resolved]
  - Interstitial lung disease [Recovered/Resolved]
